FAERS Safety Report 4696772-1 (Version None)
Quarter: 2005Q2

REPORT INFORMATION
  Report Type: 
  Country: None (occurrence: None)
  Receive Date: 20050622
  Receipt Date: 20050408
  Transmission Date: 20051028
  Serious: Yes (Hospitalization, Other)
  Sender: FDA-Public Use
  Company Number: US-ABBOTT-05P-163-0296859-00

PATIENT
  Sex: Male
  Weight: 61.29 kg

DRUGS (5)
  1. HUMIRA [Suspect]
     Indication: RHEUMATOID ARTHRITIS
     Route: 058
     Dates: start: 20050301, end: 20050401
  2. HUMIRA [Suspect]
     Route: 058
     Dates: start: 20030301, end: 20050301
  3. GLUCOPHAGE [Concomitant]
     Indication: BLOOD GLUCOSE INCREASED
     Route: 048
     Dates: start: 20050101
  4. LEVOTHYROXINE SODIUM [Concomitant]
     Indication: DRUG USE FOR UNKNOWN INDICATION
     Route: 048
     Dates: start: 20050101
  5. ANAGRELIDE HYDROCHLORIDE [Concomitant]
     Indication: CAROTID ARTERY OCCLUSION
     Route: 048
     Dates: start: 20050101

REACTIONS (2)
  - PROSTATE CANCER METASTATIC [None]
  - PROSTATE CANCER RECURRENT [None]
